FAERS Safety Report 11490421 (Version 1)
Quarter: 2015Q3

REPORT INFORMATION
  Report Type: Spontaneous
  Country: US (occurrence: US)
  Receive Date: 20150910
  Receipt Date: 20150910
  Transmission Date: 20151125
  Serious: No
  Sender: FDA-Public Use
  Company Number: US-TEVA-590473USA

PATIENT
  Age: 58 Year
  Sex: Female

DRUGS (1)
  1. DULOXETINE. [Suspect]
     Active Substance: DULOXETINE
     Indication: PRODUCT USED FOR UNKNOWN INDICATION
     Route: 065
     Dates: start: 20150824

REACTIONS (3)
  - Blister [Unknown]
  - Rash macular [Unknown]
  - Inflammation [Unknown]

NARRATIVE: CASE EVENT DATE: 20150827
